FAERS Safety Report 7944126-4 (Version None)
Quarter: 2011Q4

REPORT INFORMATION
  Report Type: 
  Country: None (occurrence: None)
  Receive Date: 20111128
  Receipt Date: 20111123
  Transmission Date: 20120403
  Serious: Yes (Life-Threatening, Hospitalization)
  Sender: FDA-Public Use
  Company Number: DE-ASTRAZENECA-2011SE71612

PATIENT
  Age: 21439 Day
  Sex: Male
  Weight: 110 kg

DRUGS (1)
  1. BRILIQUE [Suspect]
     Route: 048
     Dates: start: 20111114

REACTIONS (1)
  - ATRIOVENTRICULAR BLOCK COMPLETE [None]
